FAERS Safety Report 6159515-0 (Version None)
Quarter: 2009Q2

REPORT INFORMATION
  Report Type: 
  Country: None (occurrence: None)
  Receive Date: 20090420
  Receipt Date: 20090202
  Transmission Date: 20091009
  Serious: No
  Sender: FDA-Public Use
  Company Number: US-ABBOTT-09P-163-0501585-00

PATIENT
  Sex: Female
  Weight: 41.768 kg

DRUGS (1)
  1. LUPRON DEPOT [Suspect]
     Indication: HAEMORRHAGE
     Dates: start: 20081123

REACTIONS (3)
  - ALOPECIA [None]
  - DRUG INEFFECTIVE [None]
  - VAGINAL HAEMORRHAGE [None]
